FAERS Safety Report 10211396 (Version 1)
Quarter: 2014Q2

REPORT INFORMATION
  Report Type: Spontaneous
  Country: US (occurrence: None)
  Receive Date: 20140530
  Receipt Date: 20140530
  Transmission Date: 20141212
  Serious: Yes (Other)
  Sender: FDA-Public Use
  Company Number: None

PATIENT
  Age: 59 Year
  Sex: Male
  Weight: 83.92 kg

DRUGS (2)
  1. GABAPENTIN [Suspect]
     Indication: NEURALGIA
     Dosage: 1 CAPSULE TID ORAL
     Route: 048
     Dates: start: 20131120, end: 20140528
  2. GABAPENTIN [Concomitant]

REACTIONS (2)
  - Blister [None]
  - Photosensitivity reaction [None]
